FAERS Safety Report 22049544 (Version 1)
Quarter: 2023Q1

REPORT INFORMATION
  Report Type: Spontaneous
  Country: US (occurrence: None)
  Receive Date: 20230228
  Receipt Date: 20230228
  Transmission Date: 20230418
  Serious: Yes (Other)
  Sender: FDA-Public Use
  Company Number: None

PATIENT
  Age: 28 Year
  Sex: Female
  Weight: 108 kg

DRUGS (2)
  1. TALTZ [Suspect]
     Active Substance: IXEKIZUMAB
     Indication: Psoriasis
     Dosage: OTHER FREQUENCY : ONCE (DAY 0);?
     Route: 058
     Dates: start: 20230116, end: 20230216
  2. TALTZ [Suspect]
     Active Substance: IXEKIZUMAB
     Indication: Psoriasis
     Dosage: OTHER FREQUENCY : EVERY OTHER WEEK;?
     Route: 058
     Dates: start: 20230116, end: 20230216

REACTIONS (11)
  - Upper respiratory tract infection [None]
  - Injection site pruritus [None]
  - Viral infection [None]
  - Pulmonary granuloma [None]
  - Lymphadenopathy [None]
  - Type IV hypersensitivity reaction [None]
  - Drug intolerance [None]
  - Injection site erythema [None]
  - Injection site warmth [None]
  - Skin disorder [None]
  - Urticaria [None]

NARRATIVE: CASE EVENT DATE: 20230213
